FAERS Safety Report 7766466 (Version 4)
Quarter: 2013Q4

REPORT INFORMATION
  Report Type: Spontaneous
  Country: US (occurrence: US)
  Receive Date: 20110120
  Receipt Date: 20131121
  Transmission Date: 20140711
  Serious: No
  Sender: FDA-Public Use
  Company Number: US-BIOGENIDEC-2011BI001766

PATIENT
  Age: 59 Year
  Sex: Female

DRUGS (6)
  1. AVONEX [Suspect]
     Indication: MULTIPLE SCLEROSIS
     Route: 030
  2. AVONEX [Suspect]
     Indication: MULTIPLE SCLEROSIS
     Route: 030
     Dates: start: 20090417, end: 20120620
  3. PRAVASTATIN [Concomitant]
     Indication: BLOOD CHOLESTEROL INCREASED
     Dates: start: 201012, end: 201101
  4. SIMVASTATIN [Concomitant]
     Indication: BLOOD CHOLESTEROL INCREASED
  5. PROZAC [Concomitant]
     Indication: DEPRESSION
  6. PRAVASTATIN [Concomitant]
     Indication: BLOOD CHOLESTEROL INCREASED
     Dates: start: 201212, end: 201212

REACTIONS (23)
  - Gait disturbance [Not Recovered/Not Resolved]
  - Blood potassium decreased [Unknown]
  - Speech disorder [Recovered/Resolved]
  - Feeling jittery [Recovered/Resolved]
  - Sensation of heaviness [Not Recovered/Not Resolved]
  - Drug intolerance [Not Recovered/Not Resolved]
  - Amnesia [Not Recovered/Not Resolved]
  - Sensory disturbance [Recovered/Resolved]
  - Dysphagia [Recovered/Resolved]
  - Hyperaesthesia [Not Recovered/Not Resolved]
  - Musculoskeletal disorder [Not Recovered/Not Resolved]
  - Neuralgia [Not Recovered/Not Resolved]
  - Hypoaesthesia [Unknown]
  - Malabsorption from injection site [Unknown]
  - Pain [Not Recovered/Not Resolved]
  - Fatigue [Not Recovered/Not Resolved]
  - Myalgia [Recovered/Resolved]
  - Arthralgia [Recovered/Resolved]
  - Pain in extremity [Not Recovered/Not Resolved]
  - Muscular weakness [Not Recovered/Not Resolved]
  - Paraesthesia [Unknown]
  - Feeling abnormal [Unknown]
  - Diarrhoea [Unknown]
